FAERS Safety Report 5450174-9 (Version None)
Quarter: 2007Q3

REPORT INFORMATION
  Report Type: 
  Country: None (occurrence: None)
  Receive Date: 20070912
  Receipt Date: 20070827
  Transmission Date: 20080115
  Serious: Yes (Life-Threatening)
  Sender: FDA-Public Use
  Company Number: JP-ASTRAZENECA-2007AP03779

PATIENT
  Age: 72 Year
  Sex: Male

DRUGS (17)
  1. SEROQUEL [Suspect]
     Indication: SCHIZOPHRENIA
     Route: 048
     Dates: start: 20070614, end: 20070615
  2. SEROQUEL [Suspect]
     Route: 048
     Dates: start: 20070615, end: 20070619
  3. SEROQUEL [Suspect]
     Route: 048
     Dates: start: 20070628, end: 20070702
  4. SEROQUEL [Suspect]
     Route: 048
     Dates: start: 20070703, end: 20070719
  5. SEROQUEL [Suspect]
     Route: 048
     Dates: start: 20070720, end: 20070803
  6. SERENACE [Suspect]
     Indication: SCHIZOPHRENIA
     Route: 042
     Dates: start: 20070615, end: 20070618
  7. SERENACE [Suspect]
     Route: 042
     Dates: start: 20070619, end: 20070621
  8. SERENACE [Suspect]
     Route: 042
     Dates: start: 20070622, end: 20070702
  9. SERENACE [Suspect]
     Route: 042
     Dates: start: 20070703, end: 20070706
  10. SERENACE [Suspect]
     Route: 048
     Dates: start: 20070629, end: 20070702
  11. SERENACE [Suspect]
     Route: 048
     Dates: start: 20070703, end: 20070705
  12. SERENACE [Suspect]
     Route: 048
     Dates: start: 20070706, end: 20070719
  13. SERENACE [Suspect]
     Route: 048
     Dates: start: 20070720
  14. NITRAZEPAM [Concomitant]
     Indication: SCHIZOPHRENIA
     Route: 048
     Dates: start: 20070614, end: 20070614
  15. AKINETON [Concomitant]
     Indication: PROPHYLAXIS
     Route: 014
     Dates: start: 20070615, end: 20070625
  16. ZYPREXA [Concomitant]
     Route: 048
     Dates: start: 20070618, end: 20070619
  17. CLONAZEPAM [Concomitant]
     Route: 048
     Dates: start: 20070618, end: 20070619

REACTIONS (4)
  - ASPARTATE AMINOTRANSFERASE INCREASED [None]
  - CONSTIPATION [None]
  - LIVER DISORDER [None]
  - PNEUMONIA [None]
